FAERS Safety Report 15833573 (Version 5)
Quarter: 2019Q2

REPORT INFORMATION
  Report Type: Spontaneous
  Country: NL (occurrence: NL)
  Receive Date: 20190116
  Receipt Date: 20190606
  Transmission Date: 20190711
  Serious: Yes (Death, Other)
  Sender: FDA-Public Use
  Company Number: NL-MYLANLABS-2019M1003431

PATIENT
  Age: 77 Year
  Sex: Male

DRUGS (16)
  1. ISONIAZID. [Suspect]
     Active Substance: ISONIAZID
     Indication: HEPATITIS A
     Dosage: 300 MILLIGRAM, MONTHLY
  2. ETHAMBUTOL [Suspect]
     Active Substance: ETHAMBUTOL HYDROCHLORIDE
     Indication: DISSEMINATED BACILLUS CALMETTE-GUERIN INFECTION
     Dosage: UNK
  3. RIFAMPICIN [Suspect]
     Active Substance: RIFAMPIN
     Indication: DISSEMINATED BACILLUS CALMETTE-GUERIN INFECTION
     Dosage: 600 MILLIGRAM, QD
     Route: 065
  4. ISONIAZID. [Suspect]
     Active Substance: ISONIAZID
     Indication: PNEUMONIA
     Dosage: 300 MILLIGRAM, QD
     Route: 065
  5. BCG [Suspect]
     Active Substance: BCG VACCINE
     Indication: BLADDER CANCER
     Dosage: UNK
     Route: 043
  6. ETHAMBUTOL [Suspect]
     Active Substance: ETHAMBUTOL HYDROCHLORIDE
     Indication: HEPATITIS A
     Dosage: 1600 MILLIGRAM, QD
     Route: 065
  7. RIFAMPICIN [Suspect]
     Active Substance: RIFAMPIN
     Indication: PNEUMONIA
     Dosage: UNK
  8. RIFAMPICIN [Suspect]
     Active Substance: RIFAMPIN
     Indication: HEPATOTOXICITY
  9. PREDNISONE. [Concomitant]
     Active Substance: PREDNISONE
     Indication: DISSEMINATED BACILLUS CALMETTE-GUERIN INFECTION
     Dosage: 20 MILLIGRAM, QD
     Route: 065
  10. PREDNISONE. [Concomitant]
     Active Substance: PREDNISONE
     Indication: PNEUMONIA
  11. ETHAMBUTOL [Suspect]
     Active Substance: ETHAMBUTOL HYDROCHLORIDE
     Indication: HEPATOTOXICITY
  12. ISONIAZID. [Suspect]
     Active Substance: ISONIAZID
     Indication: DISSEMINATED BACILLUS CALMETTE-GUERIN INFECTION
     Dosage: UNK
  13. ISONIAZID. [Suspect]
     Active Substance: ISONIAZID
     Indication: HEPATOTOXICITY
  14. ETHAMBUTOL [Suspect]
     Active Substance: ETHAMBUTOL HYDROCHLORIDE
     Indication: PNEUMONIA
     Dosage: 1600 MILLIGRAM, MONTHLY
  15. RIFAMPICIN [Suspect]
     Active Substance: RIFAMPIN
     Indication: HEPATITIS A
     Dosage: 600 MILLIGRAM, MONTHLY
  16. PREDNISONE. [Concomitant]
     Active Substance: PREDNISONE
     Indication: HEPATITIS A
     Dosage: UNK
     Route: 065

REACTIONS (9)
  - Hepatitis [Fatal]
  - Drug ineffective [Unknown]
  - Pyrexia [Recovered/Resolved]
  - Hepatotoxicity [Unknown]
  - Pneumonitis [Recovered/Resolved]
  - Metastasis [Fatal]
  - Hilar lymphadenopathy [Recovered/Resolved]
  - Cough [Recovered/Resolved]
  - Dyspnoea [Recovered/Resolved]
